FAERS Safety Report 15022447 (Version 1)
Quarter: 2018Q2

REPORT INFORMATION
  Report Type: Spontaneous
  Country: ZA (occurrence: ZA)
  Receive Date: 20180618
  Receipt Date: 20180618
  Transmission Date: 20180711
  Serious: Yes (Death, Other)
  Sender: FDA-Public Use
  Company Number: IND-ZA-009507513-1806ZAF006406

PATIENT
  Sex: Female

DRUGS (4)
  1. EXINEF [Suspect]
     Active Substance: ETORICOXIB
     Indication: MYELOPATHY
     Route: 048
  2. TRAMADOL HYDROCHLORIDE. [Concomitant]
     Active Substance: TRAMADOL HYDROCHLORIDE
     Indication: MYELOPATHY
  3. TRAMADOL HYDROCHLORIDE. [Concomitant]
     Active Substance: TRAMADOL HYDROCHLORIDE
     Indication: NEURALGIA
  4. EXINEF [Suspect]
     Active Substance: ETORICOXIB
     Indication: NEURALGIA

REACTIONS (4)
  - Cor pulmonale [Unknown]
  - Death [Fatal]
  - Pulmonary oedema [Unknown]
  - Peripheral swelling [Unknown]
